FAERS Safety Report 23536015 (Version 1)
Quarter: 2024Q1

REPORT INFORMATION
  Report Type: Spontaneous
  Country: SI (occurrence: SI)
  Receive Date: 20240219
  Receipt Date: 20240219
  Transmission Date: 20240409
  Serious: Yes (Other)
  Sender: FDA-Public Use
  Company Number: SI-AstraZeneca-2024A036824

PATIENT

DRUGS (9)
  1. GOSERELIN [Suspect]
     Active Substance: GOSERELIN
     Indication: Metastatic salivary gland cancer
     Dosage: 3.6 MILLIGRAM, MONTHLY
     Route: 058
     Dates: start: 20150215, end: 20160201
  2. ZOLADEX [Suspect]
     Active Substance: GOSERELIN ACETATE
     Indication: Metastatic salivary gland cancer
     Dosage: UNK
     Route: 065
  3. BICALUTAMIDE [Suspect]
     Active Substance: BICALUTAMIDE
     Indication: Metastatic salivary gland cancer
     Dosage: 50 MILLIGRAM, QD
     Route: 048
     Dates: start: 20150215, end: 20160201
  4. ABIRATERONE ACETATE [Concomitant]
     Active Substance: ABIRATERONE ACETATE
     Indication: Product used for unknown indication
     Dosage: UNK
     Route: 065
  5. TRASTUZUMAB [Concomitant]
     Active Substance: TRASTUZUMAB
     Indication: Product used for unknown indication
     Dosage: UNK
     Route: 065
  6. PACLITAXEL [Concomitant]
     Active Substance: PACLITAXEL
     Indication: Product used for unknown indication
     Dosage: UNK
     Route: 065
  7. ZOLEDRONIC ACID [Concomitant]
     Active Substance: ZOLEDRONIC ACID
     Indication: Product used for unknown indication
     Dosage: UNK
     Route: 065
  8. VINORELBINE [Concomitant]
     Active Substance: VINORELBINE TARTRATE
     Indication: Product used for unknown indication
     Dosage: UNK
     Route: 065
  9. CAPECITABINE [Concomitant]
     Active Substance: CAPECITABINE
     Indication: Product used for unknown indication
     Dosage: UNK
     Route: 065

REACTIONS (4)
  - Pancytopenia [Unknown]
  - Testosterone deficiency syndrome [Unknown]
  - Blood alkaline phosphatase increased [Unknown]
  - Off label use [Unknown]
